FAERS Safety Report 9349451 (Version 1)
Quarter: 2013Q2

REPORT INFORMATION
  Report Type: Spontaneous
  Country: US (occurrence: US)
  Receive Date: 20130614
  Receipt Date: 20130614
  Transmission Date: 20140414
  Serious: No
  Sender: FDA-Public Use
  Company Number: US-TEVA-367055USA

PATIENT
  Sex: Female

DRUGS (2)
  1. IDARUBICIN [Suspect]
  2. TRETINOIN [Suspect]

REACTIONS (1)
  - Drug prescribing error [Unknown]
